FAERS Safety Report 14750610 (Version 1)
Quarter: 2018Q2

REPORT INFORMATION
  Report Type: Spontaneous
  Country: US (occurrence: US)
  Receive Date: 20180412
  Receipt Date: 20180412
  Transmission Date: 20180711
  Serious: No
  Sender: FDA-Public Use
  Company Number: US-PFIZER INC-2018146576

PATIENT
  Age: 67 Year
  Sex: Female
  Weight: 54.88 kg

DRUGS (1)
  1. GABAPENTIN. [Suspect]
     Active Substance: GABAPENTIN
     Indication: FIBROMYALGIA
     Dosage: 300MG CAPSULE BY MOUTH, ONE IN THE MORNING, TWO AT NIGHT
     Route: 048
     Dates: start: 2010, end: 20180329

REACTIONS (2)
  - Bone pain [Unknown]
  - Drug ineffective for unapproved indication [Not Recovered/Not Resolved]

NARRATIVE: CASE EVENT DATE: 201710
